FAERS Safety Report 4447678-4 (Version None)
Quarter: 2004Q3

REPORT INFORMATION
  Report Type: 
  Country: None (occurrence: None)
  Receive Date: 20040913
  Receipt Date: 20040617
  Transmission Date: 20050211
  Serious: Yes (Death, Hospitalization)
  Sender: FDA-Public Use
  Company Number: PHHO2004NO08668

PATIENT
  Age: 73 Year
  Sex: Male

DRUGS (4)
  1. LESCOL [Suspect]
     Indication: RENAL TRANSPLANT
     Dosage: 80 MG, QD
     Route: 048
     Dates: start: 20021022, end: 20030401
  2. NEORAL [Suspect]
     Indication: RENAL TRANSPLANT
     Dosage: 200 MG/DAY
     Route: 048
     Dates: start: 19930101
  3. PREDNISOLONE [Suspect]
     Indication: RENAL TRANSPLANT
     Dosage: 5 MG/DAY
     Route: 048
     Dates: start: 19930101
  4. IMUREL [Suspect]
     Indication: RENAL TRANSPLANT
     Dosage: 75 MG/DAY
     Route: 048
     Dates: start: 19930101

REACTIONS (4)
  - INTRAOCULAR MELANOMA [None]
  - METASTASES TO BONE [None]
  - METASTASES TO LUNG [None]
  - METASTATIC MALIGNANT MELANOMA [None]
